FAERS Safety Report 23310917 (Version 1)
Quarter: 2023Q4

REPORT INFORMATION
  Report Type: Spontaneous
  Country: CN (occurrence: CN)
  Receive Date: 20231218
  Receipt Date: 20231218
  Transmission Date: 20240109
  Serious: Yes (Life-Threatening, Hospitalization, Other)
  Sender: FDA-Public Use
  Company Number: None

PATIENT
  Age: 66 Year
  Sex: Male

DRUGS (4)
  1. MYCOPHENOLATE MOFETIL [Suspect]
     Active Substance: MYCOPHENOLATE MOFETIL
     Indication: Hypoglycaemia
     Dosage: 500 MILLIGRAM, BID (EVERY 12 HOURS)
     Route: 065
  2. PREDNISOLONE [Concomitant]
     Active Substance: PREDNISOLONE
     Indication: Hypoglycaemia
     Dosage: 15 MILLIGRAM, QD (EVERY 1 DAY)
     Route: 065
  3. PREDNISOLONE [Concomitant]
     Active Substance: PREDNISOLONE
     Dosage: 30 MILLIGRAM, QD (EVERY 1 DAY)
     Route: 065
  4. PREDNISOLONE [Concomitant]
     Active Substance: PREDNISOLONE
     Dosage: 7.5 MILLIGRAM, QD (EVERY 1 DAY)
     Route: 065

REACTIONS (4)
  - Endocarditis [Unknown]
  - Intervertebral discitis [Unknown]
  - Septic shock [Unknown]
  - Staphylococcal infection [Unknown]
